FAERS Safety Report 5487778-3 (Version None)
Quarter: 2007Q3

REPORT INFORMATION
  Report Type: 
  Country: None (occurrence: None)
  Receive Date: 20070927
  Receipt Date: 20070801
  Transmission Date: 20080115
  Serious: Yes (Other)
  Sender: FDA-Public Use
  Company Number: A03200704936

PATIENT
  Age: 64 Year
  Sex: Female

DRUGS (2)
  1. AMBIEN [Suspect]
     Indication: INSOMNIA
     Dosage: 12.5 MG HS - ORAL
     Route: 048
     Dates: start: 20061101, end: 20070730
  2. OLMESARTAN MEDOXOMIL [Concomitant]

REACTIONS (7)
  - BACTERIAL INFECTION [None]
  - FEELING ABNORMAL [None]
  - ILL-DEFINED DISORDER [None]
  - PHARYNGEAL OEDEMA [None]
  - PHARYNGOLARYNGEAL PAIN [None]
  - SWOLLEN TONGUE [None]
  - TONGUE BITING [None]
